FAERS Safety Report 8765296 (Version 4)
Quarter: 2013Q3

REPORT INFORMATION
  Report Type: Report from Study
  Country: JP (occurrence: JP)
  Receive Date: 20120831
  Receipt Date: 20130815
  Transmission Date: 20140515
  Serious: Yes (Other)
  Sender: FDA-Public Use
  Company Number: JP-VERTEX PHARMACEUTICAL INC.-AE-2012-010406

PATIENT
  Age: 54 Year
  Sex: Male

DRUGS (23)
  1. VX-950 (TELAPREVIR) [Suspect]
     Indication: CHRONIC HEPATITIS C
     Dosage: 2250 MG, QD
     Route: 048
     Dates: start: 20120529, end: 20120820
  2. REBETOL [Suspect]
     Indication: CHRONIC HEPATITIS C
     Dosage: 800 MG, QD
     Route: 048
     Dates: start: 20120529, end: 20120618
  3. REBETOL [Suspect]
     Dosage: 600 MG, QD
     Route: 048
     Dates: start: 20120619, end: 20120723
  4. REBETOL [Suspect]
     Dosage: 400 MG, QD
     Route: 048
     Dates: start: 20120724, end: 20120827
  5. REBETOL [Suspect]
     Dosage: 200 MG, QD
     Route: 048
     Dates: start: 20120828, end: 20121015
  6. REBETOL [Suspect]
     Dosage: 400 MG, QD
     Route: 048
     Dates: start: 20121016, end: 20121105
  7. REBETOL [Suspect]
     Dosage: 600 MG, QD
     Route: 048
     Dates: start: 20121106, end: 20121112
  8. REBETOL [Suspect]
     Dosage: 800 MG, QD
     Route: 048
     Dates: start: 20121113
  9. PEG INTRON [Suspect]
     Indication: CHRONIC HEPATITIS C
     Dosage: 1.5 ?G/KG, QW
     Route: 058
     Dates: start: 20120529, end: 20120618
  10. PEG INTRON [Suspect]
     Dosage: 0.7 ?G/KG, QW
     Route: 058
     Dates: start: 20120619, end: 20120703
  11. PEG INTRON [Suspect]
     Dosage: 1.5 ?G/KG, QW
     Route: 058
     Dates: start: 20120704, end: 20120716
  12. PEG INTRON [Suspect]
     Dosage: 0.7 ?G/KG, QW
     Route: 058
     Dates: start: 20120717, end: 20120806
  13. PEG INTRON [Suspect]
     Dosage: 1.5 ?G/KG, QW
     Route: 058
     Dates: start: 20120807, end: 20120910
  14. PEG INTRON [Suspect]
     Dosage: 0.7 ?G/KG, QW
     Route: 058
     Dates: start: 20120911, end: 20121022
  15. PEG INTRON [Suspect]
     Dosage: 1.5 ?G/KG, QW
     Route: 058
     Dates: start: 20121023
  16. ALOSITOL [Suspect]
     Indication: ADVERSE EVENT
     Dosage: 300 MG, QD
     Route: 048
     Dates: start: 20120604, end: 20120709
  17. ALOSITOL [Suspect]
     Dosage: 200 MG, QD
     Route: 048
     Dates: start: 20120710, end: 20120910
  18. GLYCYRON [Concomitant]
     Dosage: 6 DF, QD
     Route: 048
     Dates: end: 20121015
  19. VITAMEDIN [Concomitant]
     Dosage: 3 DF, QD
     Route: 048
     Dates: end: 20121008
  20. URSO [Concomitant]
     Dosage: 600 MG, QD
     Route: 048
     Dates: end: 20121022
  21. LOCOID [Concomitant]
     Dosage: UNK, QD
     Route: 061
     Dates: start: 20120619
  22. LIDOMEX [Concomitant]
     Dosage: UNK, QD
     Route: 051
     Dates: start: 20120619, end: 20120626
  23. PREDNISOLONE [Concomitant]
     Dosage: 10 MG, QD
     Route: 048
     Dates: start: 20120821, end: 20120827

REACTIONS (1)
  - Neutrophil count decreased [Recovered/Resolved]
